FAERS Safety Report 13965732 (Version 2)
Quarter: 2017Q4

REPORT INFORMATION
  Report Type: Spontaneous
  Country: US (occurrence: US)
  Receive Date: 20170913
  Receipt Date: 20171010
  Transmission Date: 20180320
  Serious: Yes (Other)
  Sender: FDA-Public Use
  Company Number: US-PFIZER INC-2017393858

PATIENT
  Age: 58 Year
  Sex: Female

DRUGS (2)
  1. BUPIVACAINE HCL [Suspect]
     Active Substance: BUPIVACAINE HYDROCHLORIDE
     Indication: ANALGESIC THERAPY
     Dosage: UNK, 1X/DAY (BUPIVACAINE 0.75% IN DEXTROSE 8.25%)
     Dates: start: 20170831
  2. BUPIVACAINE HCL [Suspect]
     Active Substance: BUPIVACAINE HYDROCHLORIDE
     Indication: ORTHOPAEDIC PROCEDURE
     Dosage: 2 ML, SINGLE
     Dates: start: 20170831, end: 20170831

REACTIONS (1)
  - Drug ineffective [Unknown]

NARRATIVE: CASE EVENT DATE: 20170831
